FAERS Safety Report 5110655-4 (Version None)
Quarter: 2006Q3

REPORT INFORMATION
  Report Type: 
  Country: None (occurrence: None)
  Receive Date: 20060921
  Receipt Date: 20060914
  Transmission Date: 20061208
  Serious: Yes (Other)
  Sender: FDA-Public Use
  Company Number: US-GILEAD-2006-0010230

PATIENT
  Sex: Male

DRUGS (5)
  1. VIREAD [Suspect]
     Indication: HIV INFECTION
  2. LEXIVA [Concomitant]
     Indication: HIV INFECTION
  3. NORVIR [Concomitant]
     Indication: HIV INFECTION
  4. ENTECAVIR [Concomitant]
     Indication: HEPATITIS B
  5. LAMIVUDINE [Concomitant]
     Indication: HIV INFECTION

REACTIONS (2)
  - FOOT FRACTURE [None]
  - OSTEOPOROSIS [None]
